FAERS Safety Report 10861958 (Version 1)
Quarter: 2015Q1

REPORT INFORMATION
  Report Type: Spontaneous
  Country: CA (occurrence: CA)
  Receive Date: 20150224
  Receipt Date: 20150224
  Transmission Date: 20150721
  Serious: Yes (Hospitalization)
  Sender: FDA-Public Use
  Company Number: CA-PFIZER INC-2015065186

PATIENT
  Age: 13 Year
  Sex: Female

DRUGS (2)
  1. IDARUBICIN HCL [Suspect]
     Active Substance: IDARUBICIN HYDROCHLORIDE
  2. TRETINOIN. [Suspect]
     Active Substance: TRETINOIN

REACTIONS (3)
  - Benign intracranial hypertension [Unknown]
  - Acute promyelocytic leukaemia differentiation syndrome [Unknown]
  - Seizure [Unknown]
